FAERS Safety Report 12911491 (Version 1)
Quarter: 2016Q4

REPORT INFORMATION
  Report Type: Spontaneous
  Country: US (occurrence: US)
  Receive Date: 20161104
  Receipt Date: 20161104
  Transmission Date: 20170207
  Serious: Yes (Hospitalization, Other)
  Sender: FDA-Public Use
  Company Number: US-CIPLA LTD.-2016US20293

PATIENT

DRUGS (3)
  1. GABAPENTIN. [Suspect]
     Active Substance: GABAPENTIN
     Indication: NEUROPATHY PERIPHERAL
     Dosage: 300 MG, TID
     Route: 048
     Dates: start: 201602, end: 201602
  2. GABAPENTIN. [Suspect]
     Active Substance: GABAPENTIN
     Indication: NEURALGIA
  3. INSULIN [Concomitant]
     Active Substance: INSULIN NOS
     Indication: DIABETES MELLITUS
     Dosage: UNK
     Route: 065

REACTIONS (4)
  - Drug ineffective [Unknown]
  - Peripheral coldness [Recovered/Resolved]
  - Muscle twitching [Recovered/Resolved]
  - Poor quality sleep [Recovered/Resolved]

NARRATIVE: CASE EVENT DATE: 201602
